FAERS Safety Report 13285504 (Version 2)
Quarter: 2017Q3

REPORT INFORMATION
  Report Type: Spontaneous
  Country: US (occurrence: US)
  Receive Date: 20170301
  Receipt Date: 20170712
  Transmission Date: 20171127
  Serious: Yes (Hospitalization)
  Sender: FDA-Public Use
  Company Number: US-VIFOR (INTERNATIONAL) INC.-VIT-2017-01819

PATIENT
  Age: 66 Year
  Sex: Female
  Weight: 52.5 kg

DRUGS (11)
  1. VELTASSA [Suspect]
     Active Substance: PATIROMER
     Dates: start: 20160819
  2. VELTASSA [Suspect]
     Active Substance: PATIROMER
     Indication: HYPERKALAEMIA
     Route: 048
     Dates: start: 20160310
  3. RENVELA [Concomitant]
     Active Substance: SEVELAMER CARBONATE
  4. PROMETHAZINE HYDROCHLORIDE. [Concomitant]
     Active Substance: PROMETHAZINE HYDROCHLORIDE
  5. CARVEDILOL. [Concomitant]
     Active Substance: CARVEDILOL
  6. GABAPENTIN. [Concomitant]
     Active Substance: GABAPENTIN
  7. ACETYLSALICYLIC ACID [Concomitant]
     Active Substance: ASPIRIN
  8. COUMADIN [Concomitant]
     Active Substance: WARFARIN SODIUM
  9. NORCO [Concomitant]
     Active Substance: ACETAMINOPHEN\HYDROCODONE BITARTRATE
     Indication: PAIN
     Dates: start: 201608
  10. KLONOPIN [Concomitant]
     Active Substance: CLONAZEPAM
  11. ALLOPURINOL. [Concomitant]
     Active Substance: ALLOPURINOL

REACTIONS (4)
  - Leg amputation [Unknown]
  - Pain [Unknown]
  - Limb injury [Unknown]
  - Cerebrovascular accident [Unknown]

NARRATIVE: CASE EVENT DATE: 2017
